FAERS Safety Report 5668891-4 (Version None)
Quarter: 2008Q1

REPORT INFORMATION
  Report Type: 
  Country: None (occurrence: None)
  Receive Date: 20080317
  Receipt Date: 20080303
  Transmission Date: 20080703
  Serious: Yes (Hospitalization)
  Sender: FDA-Public Use
  Company Number: BE-BAYER-BE-2007-026087

PATIENT
  Age: 37 Year
  Sex: Female

DRUGS (3)
  1. BETAFERON [Suspect]
     Indication: SECONDARY PROGRESSIVE MULTIPLE SCLEROSIS
     Dosage: UNIT DOSE: 4 MIU
     Route: 058
     Dates: start: 20070606, end: 20070706
  2. BETAFERON [Suspect]
     Dosage: UNIT DOSE: 6 MIU
     Route: 058
     Dates: start: 20070708
  3. NOVANTRONE [Concomitant]
     Indication: SECONDARY PROGRESSIVE MULTIPLE SCLEROSIS

REACTIONS (5)
  - DIZZINESS [None]
  - EPILEPSY [None]
  - GALLBLADDER OPERATION [None]
  - HYPOTENSION [None]
  - LOSS OF CONSCIOUSNESS [None]
